FAERS Safety Report 5809972-1 (Version None)
Quarter: 2008Q3

REPORT INFORMATION
  Report Type: 
  Country: None (occurrence: None)
  Receive Date: 20080715
  Receipt Date: 20080711
  Transmission Date: 20090109
  Serious: Yes (Other)
  Sender: FDA-Public Use
  Company Number: GB-TEVA-174228ISR

PATIENT
  Age: 58 Year
  Sex: Female
  Weight: 63 kg

DRUGS (2)
  1. NITROFURANTOIN [Suspect]
     Indication: ESCHERICHIA INFECTION
     Route: 048
     Dates: start: 20080613, end: 20080620
  2. NITROFURANTOIN [Suspect]
     Indication: URINARY TRACT INFECTION

REACTIONS (2)
  - OEDEMA PERIPHERAL [None]
  - PITTING OEDEMA [None]
